FAERS Safety Report 16123765 (Version 1)
Quarter: 2019Q1

REPORT INFORMATION
  Report Type: Report from Study
  Country: DE (occurrence: DE)
  Receive Date: 20190327
  Receipt Date: 20190327
  Transmission Date: 20190418
  Serious: Yes (Death, Hospitalization, Other)
  Sender: FDA-Public Use
  Company Number: DE-PFIZER INC-2019129835

PATIENT
  Age: 74 Year
  Sex: Male

DRUGS (28)
  1. OXALIPLATIN. [Suspect]
     Active Substance: OXALIPLATIN
     Indication: COLORECTAL CANCER
     Dosage: 120 MG, UNK
     Route: 042
     Dates: start: 20160111, end: 20160111
  2. 5-FLUOROURACIL [FLUOROURACIL] [Suspect]
     Active Substance: FLUOROURACIL
     Dosage: 650 MG, UNK
     Route: 040
     Dates: start: 20151202, end: 20151221
  3. ATOSIL [PROMETHAZINE HYDROCHLORIDE] [Concomitant]
     Indication: HYPERTENSION
     Dosage: 25 MG
     Route: 042
     Dates: start: 20160302, end: 20160320
  4. 5-FLUOROURACIL [FLUOROURACIL] [Suspect]
     Active Substance: FLUOROURACIL
     Dosage: 3400 MG, UNK
     Route: 041
     Dates: start: 20160111, end: 20160113
  5. PANITUMUMAB [Concomitant]
     Active Substance: PANITUMUMAB
     Indication: COLORECTAL CANCER
     Dosage: 540 MG, ONCE
     Route: 042
     Dates: start: 20151028, end: 20151028
  6. DERMATOP [Concomitant]
     Active Substance: PREDNICARBATE
     Indication: ERYTHEMA
     Dosage: 99 ML
     Route: 065
     Dates: start: 20151103, end: 20151221
  7. BEVACIZUMAB. [Suspect]
     Active Substance: BEVACIZUMAB
     Dosage: 450 MG, UNK
     Route: 042
     Dates: start: 20151118, end: 20151118
  8. 5-FLUOROURACIL [FLUOROURACIL] [Suspect]
     Active Substance: FLUOROURACIL
     Dosage: 675 MG, UNK
     Route: 040
     Dates: start: 20151118, end: 20151118
  9. MCP [METOCLOPRAMIDE] [Concomitant]
     Indication: NAUSEA
     Dosage: 10 MG
     Route: 048
     Dates: start: 20150916, end: 201601
  10. CLONIDIN [Concomitant]
     Active Substance: CLONIDINE
     Indication: HYPERTENSION
     Dosage: 0.15 MG
     Route: 042
     Dates: start: 20160229
  11. PANTOZOL [Concomitant]
     Active Substance: PANTOPRAZOLE SODIUM
     Dosage: 40 MG
     Route: 048
     Dates: start: 20150923, end: 20160316
  12. BEVACIZUMAB. [Suspect]
     Active Substance: BEVACIZUMAB
     Indication: COLORECTAL CANCER
     Dosage: 425 MG, UNK
     Route: 042
     Dates: start: 20160111, end: 20160111
  13. 5-FLUOROURACIL [FLUOROURACIL] [Suspect]
     Active Substance: FLUOROURACIL
     Dosage: 675 MG, UNK
     Route: 040
     Dates: start: 20151028, end: 20151028
  14. TAVOR (LORAZEPAM) [Concomitant]
     Active Substance: LORAZEPAM
     Indication: SURGERY
     Dosage: 1 MG
     Route: 048
     Dates: start: 20160228, end: 20160316
  15. NADIXA [Concomitant]
     Indication: ERYTHEMA
     Dosage: 99 ML
     Dates: start: 20151103, end: 20151221
  16. CLEXANE [Concomitant]
     Active Substance: ENOXAPARIN SODIUM
     Indication: THROMBOSIS
     Dosage: 0.2 ML, 1X/DAY
     Route: 058
     Dates: start: 20160203, end: 20160213
  17. 5-FLUOROURACIL [FLUOROURACIL] [Suspect]
     Active Substance: FLUOROURACIL
     Dosage: 4000 MG, UNK
     Route: 041
     Dates: start: 20150923, end: 20151120
  18. FOLINIC ACID [Concomitant]
     Active Substance: LEUCOVORIN
     Indication: COLORECTAL CANCER
     Dosage: 400-670 MG
     Route: 042
     Dates: start: 20150923, end: 20160111
  19. FOLINIC ACID [Concomitant]
     Active Substance: LEUCOVORIN
     Dosage: 400 MG ONLY ON 23-SEP-2015
     Route: 042
     Dates: start: 20151014, end: 20151018
  20. CIPROBAY [CIPROFLOXACIN] [Concomitant]
     Indication: URINARY TRACT INFECTION
     Dosage: 500 MG, 1X/DAY
     Route: 048
     Dates: start: 20160209, end: 20160221
  21. METOPROLOL. [Concomitant]
     Active Substance: METOPROLOL
     Dosage: 50 MG, 1X/DAY
     Route: 048
     Dates: start: 20160129, end: 20160203
  22. 5-FLUOROURACIL [FLUOROURACIL] [Suspect]
     Active Substance: FLUOROURACIL
     Indication: COLORECTAL CANCER
     Dosage: 650 MG, UNK
     Route: 040
     Dates: start: 20150923, end: 20150923
  23. 5-FLUOROURACIL [FLUOROURACIL] [Suspect]
     Active Substance: FLUOROURACIL
     Dosage: 675 MG, UNK
     Route: 040
     Dates: start: 20151014, end: 20151118
  24. ASPIRIN. [Concomitant]
     Active Substance: ASPIRIN
     Indication: CEREBROVASCULAR DISORDER
     Dosage: 100 MG, 1X/DAY
     Route: 048
     Dates: start: 2009, end: 20160313
  25. OXALIPLATIN. [Suspect]
     Active Substance: OXALIPLATIN
     Dosage: 140 MG, (14OCT2015, 28OCT2015, 18NOV2015, 02DEC2015, 21DEC2015)
     Route: 042
     Dates: start: 20150923
  26. 5-FLUOROURACIL [FLUOROURACIL] [Suspect]
     Active Substance: FLUOROURACIL
     Dosage: 3900 MG, UNK
     Route: 041
     Dates: start: 20151202, end: 20151223
  27. 5-FLUOROURACIL [FLUOROURACIL] [Suspect]
     Active Substance: FLUOROURACIL
     Dosage: 575 MG, UNK
     Route: 040
     Dates: start: 20160111, end: 20160111
  28. LOPERAMID [Concomitant]
     Active Substance: LOPERAMIDE
     Indication: DIARRHOEA
     Dosage: 99 MG
     Route: 048
     Dates: start: 20160111

REACTIONS (14)
  - Haemoglobin decreased [Not Recovered/Not Resolved]
  - Ascites [Not Recovered/Not Resolved]
  - Haemorrhage [Unknown]
  - Hypertension [Not Recovered/Not Resolved]
  - Delirium [Unknown]
  - Faecaloma [Recovered/Resolved]
  - Subileus [Recovered/Resolved]
  - Pyrexia [Not Recovered/Not Resolved]
  - Abscess [Fatal]
  - Faecaloma [Recovered/Resolved]
  - Wound infection [Not Recovered/Not Resolved]
  - Wound haemorrhage [Not Recovered/Not Resolved]
  - Proctalgia [Not Recovered/Not Resolved]
  - Anaemia [Unknown]

NARRATIVE: CASE EVENT DATE: 20151130
